FAERS Safety Report 9185975 (Version 5)
Quarter: 2014Q1

REPORT INFORMATION
  Report Type: Spontaneous
  Country: US (occurrence: US)
  Receive Date: 20130325
  Receipt Date: 20140123
  Transmission Date: 20141002
  Serious: No
  Sender: FDA-Public Use
  Company Number: US-009507513-1303USA008242

PATIENT
  Sex: Male

DRUGS (5)
  1. REBETOL [Suspect]
     Indication: HEPATITIS C
     Dosage: 6 PILLS/DAILY
     Route: 048
     Dates: start: 20130215, end: 2013
  2. REBETOL [Suspect]
     Dosage: 3 PILLS/DAILY
     Route: 048
     Dates: start: 2013, end: 2013
  3. REBETOL [Suspect]
     Dosage: 2 PILLS/DAILY
     Route: 048
     Dates: start: 2013, end: 20131015
  4. PEGASYS [Suspect]
     Indication: HEPATITIS C
     Dosage: UNK, QW
     Route: 058
     Dates: start: 20130215, end: 20131015
  5. VICTRELIS [Suspect]
     Indication: HEPATITIS C
     Dosage: 2400 MG DAILY, TID
     Route: 048
     Dates: start: 20130315, end: 20131015

REACTIONS (19)
  - Dyspnoea [Unknown]
  - Anaemia [Unknown]
  - Ear disorder [Unknown]
  - Memory impairment [Recovering/Resolving]
  - Hyperhidrosis [Unknown]
  - Fatigue [Recovering/Resolving]
  - Vision blurred [Unknown]
  - Insomnia [Unknown]
  - Back pain [Unknown]
  - Pain in extremity [Unknown]
  - Nausea [Unknown]
  - Headache [Recovering/Resolving]
  - Dysgeusia [Unknown]
  - Infection [Recovering/Resolving]
  - Diarrhoea [Recovered/Resolved]
  - Rash [Recovered/Resolved]
  - Fatigue [Unknown]
  - Dyspnoea [Unknown]
  - Headache [Unknown]
